FAERS Safety Report 8826313 (Version 1)
Quarter: 2012Q4

REPORT INFORMATION
  Report Type: 
  Country: US (occurrence: US)
  Receive Date: 20121008
  Receipt Date: 20121008
  Transmission Date: 20130627
  Serious: No
  Sender: FDA-Public Use
  Company Number: US-GLAXOSMITHKLINE-A0992793A

PATIENT
  Sex: Male

DRUGS (1)
  1. POTIGA [Suspect]
     Indication: CONVULSION
     Dosage: 600U Unknown
     Route: 048

REACTIONS (1)
  - Chromaturia [Unknown]
